FAERS Safety Report 8047333-8 (Version None)
Quarter: 2012Q1

REPORT INFORMATION
  Report Type: 
  Country: None (occurrence: None)
  Receive Date: 20120116
  Receipt Date: 20110916
  Transmission Date: 20120608
  Serious: No
  Sender: FDA-Public Use
  Company Number: US-TEVA-258440USA

PATIENT
  Sex: Female

DRUGS (7)
  1. CELEXA [Concomitant]
     Indication: ANXIETY
     Dates: start: 20090601
  2. FISH OIL [Concomitant]
     Dates: start: 20100401
  3. FISH OIL [Concomitant]
     Dates: start: 20100401
  4. CELEXA [Concomitant]
     Dates: start: 20100401
  5. COPAXONE [Suspect]
     Indication: MULTIPLE SCLEROSIS
     Route: 058
     Dates: start: 20100216, end: 20101117
  6. CELEXA [Concomitant]
     Dates: start: 20101117
  7. FISH OIL [Concomitant]
     Dates: start: 20101117

REACTIONS (1)
  - LIVE BIRTH [None]
